FAERS Safety Report 7529459-8 (Version None)
Quarter: 2011Q2

REPORT INFORMATION
  Report Type: 
  Country: None (occurrence: None)
  Receive Date: 20110607
  Receipt Date: 20050310
  Transmission Date: 20111010
  Serious: Yes (Death, Other)
  Sender: FDA-Public Use
  Company Number: PHHO2005CN21021

PATIENT
  Sex: Female

DRUGS (1)
  1. GLEEVEC [Suspect]
     Indication: CHRONIC MYELOID LEUKAEMIA
     Route: 048
     Dates: start: 20050311

REACTIONS (4)
  - WHITE BLOOD CELL COUNT INCREASED [None]
  - SPLENOMEGALY [None]
  - MALAISE [None]
  - DEATH [None]
